FAERS Safety Report 8388093-0 (Version None)
Quarter: 2012Q2

REPORT INFORMATION
  Report Type: 
  Country: None (occurrence: None)
  Receive Date: 20120525
  Receipt Date: 20120515
  Transmission Date: 20120825
  Serious: Yes (Hospitalization, Other)
  Sender: FDA-Public Use
  Company Number: US-ABBOTT-12P-163-0935846-00

PATIENT
  Age: 53 Year
  Sex: Male

DRUGS (7)
  1. PREDNISONE TAB [Concomitant]
     Indication: PYODERMA GANGRENOSUM
     Dosage: 20 MG DAILY
  2. WARFARIN SODIUM [Concomitant]
     Indication: THROMBOSIS PROPHYLAXIS
     Dosage: DAILY FOR THREE MONTHS
  3. IRON [Concomitant]
     Indication: PRODUCT USED FOR UNKNOWN INDICATION
     Dosage: 325 MG DAILY
  4. HUMIRA [Suspect]
     Indication: PYODERMA GANGRENOSUM
     Dates: start: 20110712, end: 20111004
  5. HYDROCHLOROTHIAZIDE [Concomitant]
     Indication: SWELLING
     Dosage: (12.5 MG = 1 TAB) DAILY
  6. TYLENOL [Concomitant]
     Indication: PAIN
  7. ASPIRIN [Concomitant]
     Indication: THROMBOSIS PROPHYLAXIS
     Dosage: 81 MG DAILY

REACTIONS (9)
  - SMALL INTESTINAL OBSTRUCTION [None]
  - JOINT SWELLING [None]
  - ILEOSTOMY [None]
  - ABDOMINAL ADHESIONS [None]
  - GAIT DISTURBANCE [None]
  - KNEE ARTHROPLASTY [None]
  - OEDEMA PERIPHERAL [None]
  - ARTHRALGIA [None]
  - HERNIA [None]
